FAERS Safety Report 4574985-7 (Version None)
Quarter: 2005Q1

REPORT INFORMATION
  Report Type: 
  Country: None (occurrence: None)
  Receive Date: 20050208
  Receipt Date: 20050128
  Transmission Date: 20050727
  Serious: Yes (Hospitalization)
  Sender: FDA-Public Use
  Company Number: FR-JNJFOC-20050106776

PATIENT
  Age: 89 Year
  Sex: Female

DRUGS (5)
  1. REMINYL [Suspect]
     Route: 049
  2. REMINYL [Suspect]
     Route: 049
  3. MELILOT [Concomitant]
     Route: 065
  4. KARDEGIC [Concomitant]
     Route: 065
  5. LEVOTHYROX [Concomitant]
     Route: 065

REACTIONS (2)
  - RASH MACULAR [None]
  - SKIN EXFOLIATION [None]
